FAERS Safety Report 24170772 (Version 2)
Quarter: 2024Q3

REPORT INFORMATION
  Report Type: Spontaneous
  Country: US (occurrence: US)
  Receive Date: 20240805
  Receipt Date: 20240808
  Transmission Date: 20241016
  Serious: No
  Sender: AMGEN
  Company Number: US-AMGEN-USASP2024154196

PATIENT
  Age: 70 Year
  Sex: Male

DRUGS (2)
  1. TEPEZZA [Suspect]
     Active Substance: TEPROTUMUMAB-TRBW
     Indication: Toxic goitre
     Dosage: 682 MILLIGRAM, Q3WK, FIRST DOSE (PIV X1 DOSE)
     Route: 042
     Dates: start: 20240613
  2. TEPEZZA [Suspect]
     Active Substance: TEPROTUMUMAB-TRBW
     Dosage: 1364 MILLIGRAM, Q3WK (PIV X 7 DOSES)
     Route: 042
     Dates: start: 20240705

REACTIONS (3)
  - Road traffic accident [Recovering/Resolving]
  - Rash [Recovering/Resolving]
  - Off label use [Unknown]

NARRATIVE: CASE EVENT DATE: 20240613
